FAERS Safety Report 10268200 (Version 1)
Quarter: 2014Q2

REPORT INFORMATION
  Report Type: Spontaneous
  Country: US (occurrence: US)
  Receive Date: 20140630
  Receipt Date: 20140630
  Transmission Date: 20141212
  Serious: No
  Sender: FDA-Public Use
  Company Number: US-PFIZER INC-2014177127

PATIENT
  Age: 70 Year
  Sex: Female
  Weight: 103.4 kg

DRUGS (4)
  1. DAYPRO [Suspect]
     Indication: ARTHRALGIA
     Dosage: 600 MG, 2X/DAY
     Route: 048
     Dates: start: 1995
  2. MONTELUKAST SODIUM [Suspect]
     Dosage: UNK
     Dates: end: 20140624
  3. CHLORZOXAZONE [Concomitant]
     Dosage: UNK
  4. ACIPHEX [Concomitant]
     Dosage: UNK

REACTIONS (2)
  - Oropharyngeal pain [Unknown]
  - Drug ineffective [Unknown]
